FAERS Safety Report 10023510 (Version 3)
Quarter: 2014Q2

REPORT INFORMATION
  Report Type: Spontaneous
  Country: US (occurrence: US)
  Receive Date: 20140320
  Receipt Date: 20140425
  Transmission Date: 20141212
  Serious: Yes (Other)
  Sender: FDA-Public Use
  Company Number: US-009507513-1403USA008624

PATIENT
  Age: 85 Year
  Sex: Female

DRUGS (3)
  1. ZETIA [Suspect]
     Indication: BLOOD CHOLESTEROL
     Dosage: 10 MG, QD,ROUTE-INJECTION
     Dates: start: 20130323
  2. ZETIA [Suspect]
     Dosage: 10MG,QD,ROUTE -INJECTION
     Dates: start: 20140215
  3. PRAVASTATIN SODIUM [Concomitant]
     Dosage: UNK
     Dates: start: 20140215

REACTIONS (7)
  - Hip fracture [Unknown]
  - Drug ineffective [Recovering/Resolving]
  - Upper limb fracture [Unknown]
  - Fall [Unknown]
  - Ankle fracture [Unknown]
  - Head injury [Unknown]
  - Incorrect route of drug administration [Unknown]
